FAERS Safety Report 21682899 (Version 2)
Quarter: 2022Q4

REPORT INFORMATION
  Report Type: Report from Study
  Country: US (occurrence: US)
  Receive Date: 20221205
  Receipt Date: 20221222
  Transmission Date: 20230112
  Serious: Yes (Hospitalization, Other)
  Sender: FDA-Public Use
  Company Number: US-ABBVIE-4192269

PATIENT
  Age: 72 Year
  Sex: Female

DRUGS (1)
  1. HUMIRA [Suspect]
     Active Substance: ADALIMUMAB
     Indication: Crohn^s disease
     Dosage: CITRATE FREE?40 MILLIGRAM
     Route: 058

REACTIONS (9)
  - Splenic haemorrhage [Unknown]
  - Hip fracture [Unknown]
  - Gastrointestinal disorder [Not Recovered/Not Resolved]
  - Upper limb fracture [Unknown]
  - Contusion [Unknown]
  - Fall [Unknown]
  - Skin laceration [Unknown]
  - Pain [Unknown]
  - Foot fracture [Unknown]

NARRATIVE: CASE EVENT DATE: 20221001
